FAERS Safety Report 14416942 (Version 1)
Quarter: 2018Q1

REPORT INFORMATION
  Report Type: Spontaneous
  Country: US (occurrence: US)
  Receive Date: 20180119
  Receipt Date: 20180119
  Transmission Date: 20180509
  Serious: No
  Sender: FDA-Public Use
  Company Number: None

PATIENT
  Age: 43 Year
  Sex: Male

DRUGS (20)
  1. GLYCOPYRROLATE. [Concomitant]
     Active Substance: GLYCOPYRROLATE
  2. MINERAL OIL. [Concomitant]
     Active Substance: MINERAL OIL
  3. BISACODYL. [Concomitant]
     Active Substance: BISACODYL
  4. CALCIUM CARBONATE. [Concomitant]
     Active Substance: CALCIUM CARBONATE
  5. FLUOXETINE [Concomitant]
     Active Substance: FLUOXETINE HYDROCHLORIDE
  6. POLYETHYLENE GLYCOL 3350. [Concomitant]
     Active Substance: POLYETHYLENE GLYCOL 3350
  7. HEPARIN [Concomitant]
     Active Substance: HEPARIN SODIUM
  8. ACETAMINOPHEN. [Concomitant]
     Active Substance: ACETAMINOPHEN
  9. CALCIUM + VITAMIN D [Concomitant]
     Active Substance: CALCIUM\VITAMIN D
  10. CLOBAZAM [Concomitant]
     Active Substance: CLOBAZAM
  11. LACOSAMIDE. [Concomitant]
     Active Substance: LACOSAMIDE
  12. LEVETIRACETAM. [Concomitant]
     Active Substance: LEVETIRACETAM
  13. VANCOMYCIN [Concomitant]
     Active Substance: VANCOMYCIN
  14. ZINC OXIDE. [Concomitant]
     Active Substance: ZINC OXIDE
  15. PHENYLEPHRINE [Concomitant]
     Active Substance: PHENYLEPHRINE\PHENYLEPHRINE HYDROCHLORIDE
  16. PIPERACILLIN/TAZOBACTAM [Concomitant]
     Active Substance: PIPERACILLIN SODIUM\TAZOBACTAM SODIUM
  17. SENNA [Concomitant]
     Active Substance: SENNA LEAF\SENNOSIDES\SENNOSIDES A AND B
  18. PHENOBARBITAL. [Suspect]
     Active Substance: PHENOBARBITAL
     Indication: CONVULSION PROPHYLAXIS
     Route: 048
     Dates: start: 20170927
  19. IBUPROFEN. [Concomitant]
     Active Substance: IBUPROFEN
  20. PSYLLIUM [Concomitant]
     Active Substance: PLANTAGO SEED

REACTIONS (4)
  - Arterial injury [None]
  - Drug reaction with eosinophilia and systemic symptoms [None]
  - Enterococcus test positive [None]
  - Enterobacter test positive [None]

NARRATIVE: CASE EVENT DATE: 20171125
